FAERS Safety Report 4600678-3 (Version None)
Quarter: 2005Q1

REPORT INFORMATION
  Report Type: 
  Country: None (occurrence: None)
  Receive Date: 20050304
  Receipt Date: 20050228
  Transmission Date: 20050727
  Serious: Yes (Life-Threatening, Other)
  Sender: FDA-Public Use
  Company Number: 200510151BNE

PATIENT
  Age: 76 Year
  Sex: Female

DRUGS (10)
  1. CLOTRIMAZOLE [Suspect]
     Indication: VAGINAL CANDIDIASIS
     Dosage: 500 MG, TOTAL DAILY, NI
     Dates: start: 20050202, end: 20050209
  2. CLOTRIMAZOLE [Suspect]
     Indication: VAGINAL CANDIDIASIS
     Dosage: 500 MG, TOTAL DAILY, NI
     Dates: start: 20050202
  3. ALLOPURINOL [Concomitant]
  4. DIGOXIN [Concomitant]
  5. FRUSEMIDE [Concomitant]
  6. WARFARIN [Concomitant]
  7. PERINDOPRIL [Concomitant]
  8. TAMOXIFEN CITRATE [Concomitant]
  9. QVAR 40 [Concomitant]
  10. ALBUTEROL [Concomitant]

REACTIONS (1)
  - INTERNATIONAL NORMALISED RATIO INCREASED [None]
